FAERS Safety Report 8984363 (Version 1)
Quarter: 2012Q4

REPORT INFORMATION
  Report Type: 
  Country: JP (occurrence: JP)
  Receive Date: 20121226
  Receipt Date: 20121226
  Transmission Date: 20130627
  Serious: No
  Sender: FDA-Public Use
  Company Number: JP-JNJFOC-20121211023

PATIENT
  Sex: Male

DRUGS (4)
  1. DUROTEP MT [Suspect]
     Indication: PAIN
     Route: 062
  2. DUROTEP MT [Suspect]
     Indication: PAIN
     Route: 062
  3. DUROTEP MT [Suspect]
     Indication: PAIN
     Route: 062
  4. DUROTEP MT [Suspect]
     Indication: PAIN
     Route: 062

REACTIONS (3)
  - Treatment noncompliance [Recovered/Resolved]
  - Abdominal pain [Unknown]
  - Malaise [Unknown]
